FAERS Safety Report 17167148 (Version 1)
Quarter: 2019Q4

REPORT INFORMATION
  Report Type: Spontaneous
  Country: FR (occurrence: FR)
  Receive Date: 20191218
  Receipt Date: 20191218
  Transmission Date: 20200122
  Serious: Yes (Hospitalization)
  Sender: FDA-Public Use
  Company Number: FR-ASTRAZENECA-2019SF81256

PATIENT
  Age: 71 Year
  Sex: Female

DRUGS (7)
  1. ISOCARD [Suspect]
     Active Substance: ISOSORBIDE
     Indication: MYOCARDIAL ISCHAEMIA
     Dosage: UNKNOWN
     Route: 048
  2. SOTALOL (CHLORHYDRATE) [Suspect]
     Active Substance: SOTALOL HYDROCHLORIDE
     Indication: MYOCARDIAL ISCHAEMIA
     Route: 048
  3. PLAVIX [Suspect]
     Active Substance: CLOPIDOGREL BISULFATE
     Indication: THROMBOSIS PROPHYLAXIS
     Route: 048
  4. FUROSEMIDE. [Suspect]
     Active Substance: FUROSEMIDE
     Indication: MYOCARDIAL ISCHAEMIA
     Route: 048
  5. NICORANDIL [Suspect]
     Active Substance: NICORANDIL
     Indication: MYOCARDIAL ISCHAEMIA
     Route: 048
  6. CRESTOR [Suspect]
     Active Substance: ROSUVASTATIN CALCIUM
     Indication: PROPHYLAXIS
     Route: 048
  7. DIAMICRON [Suspect]
     Active Substance: GLICLAZIDE
     Indication: TYPE 2 DIABETES MELLITUS
     Dosage: 60 MG DAILY (0-0.5-0)
     Route: 048

REACTIONS (1)
  - Organising pneumonia [Not Recovered/Not Resolved]

NARRATIVE: CASE EVENT DATE: 20191023
